FAERS Safety Report 21090923 (Version 1)
Quarter: 2022Q3

REPORT INFORMATION
  Report Type: Spontaneous
  Country: DK (occurrence: DK)
  Receive Date: 20220716
  Receipt Date: 20220716
  Transmission Date: 20221027
  Serious: Yes (Other)
  Sender: FDA-Public Use
  Company Number: None

PATIENT
  Age: 43 Year
  Sex: Female

DRUGS (2)
  1. EPIRUBICIN [Suspect]
     Active Substance: EPIRUBICIN
     Indication: Breast cancer
     Dosage: STRENGTH: UNKNOWN, DOSAGE: GIVEN ON 21AUG2017 AND 11SEP2017,DURATION 21 DAYS,UNIT DOSE 162 MG
     Dates: start: 20170821, end: 20170911
  2. CYCLOPHOSPHAMIDE [Suspect]
     Active Substance: CYCLOPHOSPHAMIDE
     Indication: Breast cancer
     Dosage: STRENGTH: UNKNOWN, DOSAGE: GIVEN ON 21AUG2017 AND 11SEP2017,UNIT DOSE 1100 MG,DURATION 21 DAYS
     Dates: start: 20170821, end: 20170911

REACTIONS (3)
  - Paraesthesia [Not Recovered/Not Resolved]
  - Hypoaesthesia [Not Recovered/Not Resolved]
  - Neuropathy peripheral [Not Recovered/Not Resolved]

NARRATIVE: CASE EVENT DATE: 20170901
